FAERS Safety Report 6725279-2 (Version None)
Quarter: 2010Q2

REPORT INFORMATION
  Report Type: 
  Country: None (occurrence: None)
  Receive Date: 20100514
  Receipt Date: 20100511
  Transmission Date: 20101027
  Serious: Yes (Hospitalization)
  Sender: FDA-Public Use
  Company Number: US-CEPHALON-2010002708

PATIENT
  Sex: Female

DRUGS (1)
  1. PROVIGIL [Suspect]
     Indication: NARCOLEPSY
     Route: 048
     Dates: start: 20070101, end: 20100501

REACTIONS (1)
  - STEVENS-JOHNSON SYNDROME [None]
